FAERS Safety Report 4894791-3 (Version None)
Quarter: 2006Q1

REPORT INFORMATION
  Report Type: 
  Country: None (occurrence: None)
  Receive Date: 20060126
  Receipt Date: 20060126
  Transmission Date: 20060701
  Serious: Yes (Hospitalization, Other)
  Sender: FDA-Public Use
  Company Number: None

PATIENT

DRUGS (1)
  1. LIPITOR [Suspect]

REACTIONS (9)
  - ASTHENIA [None]
  - DERMATOMYOSITIS [None]
  - DIFFICULTY IN WALKING [None]
  - DYSPHAGIA [None]
  - IMPAIRED WORK ABILITY [None]
  - MALAISE [None]
  - PNEUMONIA [None]
  - POLYMYOSITIS [None]
  - WHEELCHAIR USER [None]
